FAERS Safety Report 13329416 (Version 2)
Quarter: 2017Q2

REPORT INFORMATION
  Report Type: Spontaneous
  Country: US (occurrence: US)
  Receive Date: 20170313
  Receipt Date: 20170405
  Transmission Date: 20170830
  Serious: Yes (Other)
  Sender: FDA-Public Use
  Company Number: US-AKORN PHARMACEUTICALS-2017AKN00256

PATIENT
  Sex: Male
  Weight: 81.63 kg

DRUGS (2)
  1. MYORISAN [Suspect]
     Active Substance: ISOTRETINOIN
     Indication: ACNE CYSTIC
     Dosage: 40 MG, 1X/DAY IN THE MORNING
     Route: 048
     Dates: start: 201608, end: 201702
  2. MYORISAN [Suspect]
     Active Substance: ISOTRETINOIN
     Dosage: 20 MG, 1X/DAY AT BEDTIME
     Route: 048

REACTIONS (5)
  - Depressed mood [Recovered/Resolved]
  - Depressive symptom [Recovered/Resolved]
  - Fatigue [Recovered/Resolved]
  - Anxiety [Recovered/Resolved]
  - Apathy [Recovered/Resolved]
